FAERS Safety Report 9125752 (Version 1)
Quarter: 2013Q1

REPORT INFORMATION
  Report Type: Spontaneous
  Country: BR (occurrence: BR)
  Receive Date: 20130228
  Receipt Date: 20130228
  Transmission Date: 20140127
  Serious: No
  Sender: FDA-Public Use
  Company Number: CHNY2013BR000684

PATIENT
  Age: 38 Year
  Sex: Female

DRUGS (1)
  1. LAMISILATE [Suspect]
     Indication: CHILLBLAINS
     Dosage: UNK, ONCE/SINGLE
     Route: 061

REACTIONS (2)
  - No adverse event [Unknown]
  - Wrong technique in drug usage process [Unknown]
